FAERS Safety Report 14454004 (Version 1)
Quarter: 2018Q1

REPORT INFORMATION
  Report Type: Spontaneous
  Country: US (occurrence: US)
  Receive Date: 20180129
  Receipt Date: 20180129
  Transmission Date: 20180509
  Serious: No
  Sender: FDA-Public Use
  Company Number: US-ALLERGAN-1719739US

PATIENT
  Sex: Female
  Weight: 58.5 kg

DRUGS (5)
  1. VIVELLE [Concomitant]
     Active Substance: ESTRADIOL
     Indication: HORMONE REPLACEMENT THERAPY
  2. MIRAPEX [Concomitant]
     Active Substance: PRAMIPEXOLE DIHYDROCHLORIDE
     Indication: RESTLESS LEGS SYNDROME
     Dosage: ONE IN THE EVENING
  3. TAZORAC [Suspect]
     Active Substance: TAZAROTENE
     Indication: ACNE CYSTIC
     Dosage: APPLY TO FACE AT BED TIME
     Route: 061
     Dates: start: 2005, end: 201612
  4. CALCIUM [Concomitant]
     Active Substance: CALCIUM
     Route: 065
  5. VITAMIN D [Concomitant]
     Active Substance: CHOLECALCIFEROL
     Route: 065

REACTIONS (2)
  - Acne cystic [Not Recovered/Not Resolved]
  - Drug dose omission [Unknown]
